FAERS Safety Report 17588928 (Version 1)
Quarter: 2020Q1

REPORT INFORMATION
  Report Type: Spontaneous
  Country: BR (occurrence: BR)
  Receive Date: 20200327
  Receipt Date: 20200327
  Transmission Date: 20200409
  Serious: Yes (Other)
  Sender: FDA-Public Use
  Company Number: BR-AMGEN-BRASP2020048655

PATIENT
  Age: 65 Year
  Sex: Female

DRUGS (10)
  1. ENBREL [Suspect]
     Active Substance: ETANERCEPT
     Indication: PRODUCT USED FOR UNKNOWN INDICATION
     Dosage: UNK
     Route: 065
     Dates: end: 2016
  2. GLIFAGE [Concomitant]
     Active Substance: METFORMIN HYDROCHLORIDE
     Dosage: 1 DOSAGE FORM, QD
     Route: 048
  3. ROPINOL [Concomitant]
     Active Substance: ROPINIROLE HYDROCHLORIDE
     Dosage: 1 DOSAGE FORM, QD
     Route: 048
  4. PURAN [Concomitant]
     Active Substance: LEVOTHYROXINE SODIUM
     Dosage: 1 DOSAGE FORM, QD
     Route: 048
  5. LOSARTAN POTASSIUM. [Concomitant]
     Active Substance: LOSARTAN POTASSIUM
     Dosage: 1 DOSAGE FORM, QD
     Route: 048
  6. DEFLAZACORT [Concomitant]
     Active Substance: DEFLAZACORT
     Dosage: 1 DOSAGE FORM, QD
     Route: 048
  7. RETARDILLIN [Concomitant]
     Dosage: UNK UNK, QD (1/3 TABLET IN THE MORNING)
     Route: 048
  8. TRAMADOL/PARACETAMOL [Concomitant]
     Active Substance: ACETAMINOPHEN\TRAMADOL
     Dosage: 1 DOSAGE FORM, QD
     Route: 048
  9. BROMAZEPAM [Concomitant]
     Active Substance: BROMAZEPAM
     Dosage: 1 DOSAGE FORM, Q12H
     Route: 048
  10. ATENOLOL. [Concomitant]
     Active Substance: ATENOLOL
     Dosage: 1 DOSAGE FORM, Q12H
     Route: 048

REACTIONS (1)
  - Pancreatic duct stenosis [Unknown]
